FAERS Safety Report 16590851 (Version 1)
Quarter: 2019Q3

REPORT INFORMATION
  Report Type: Spontaneous
  Country: US (occurrence: US)
  Receive Date: 20190718
  Receipt Date: 20190718
  Transmission Date: 20191004
  Serious: No
  Sender: FDA-Public Use
  Company Number: US-HORIZON-KRY-0490-2019

PATIENT
  Age: 73 Year
  Sex: Female

DRUGS (13)
  1. BENICAR [Concomitant]
     Active Substance: OLMESARTAN MEDOXOMIL
  2. GABAPENTIN. [Concomitant]
     Active Substance: GABAPENTIN
  3. ZYRTEC [Concomitant]
     Active Substance: CETIRIZINE HYDROCHLORIDE
     Dosage: 10 MG
  4. KRYSTEXXA [Suspect]
     Active Substance: PEGLOTICASE
     Indication: GOUT
     Dosage: 8 MG IV EVERY 2 WEEKS
     Route: 042
     Dates: start: 2019
  5. COLCRYS [Concomitant]
     Active Substance: COLCHICINE
  6. ZOFRAN [Concomitant]
     Active Substance: ONDANSETRON HYDROCHLORIDE
  7. KENALOG [Concomitant]
     Active Substance: TRIAMCINOLONE ACETONIDE
  8. LANTUS [Concomitant]
     Active Substance: INSULIN GLARGINE
  9. ULORIC [Concomitant]
     Active Substance: FEBUXOSTAT
  10. MYRBETRIQ [Concomitant]
     Active Substance: MIRABEGRON
     Dosage: 25 MG
  11. LUMIGAN DROPS 0.01% [Concomitant]
  12. SYNTHROID [Concomitant]
     Active Substance: LEVOTHYROXINE SODIUM
  13. LOTRISONE [Concomitant]
     Active Substance: BETAMETHASONE DIPROPIONATE\CLOTRIMAZOLE

REACTIONS (3)
  - Lymphoedema [Unknown]
  - Therapeutic procedure [Unknown]
  - Inappropriate schedule of product administration [Unknown]

NARRATIVE: CASE EVENT DATE: 201904
